FAERS Safety Report 10045460 (Version 1)
Quarter: 2014Q1

REPORT INFORMATION
  Report Type: Spontaneous
  Country: US (occurrence: US)
  Receive Date: 20140328
  Receipt Date: 20140328
  Transmission Date: 20141002
  Serious: Yes (Other)
  Sender: FDA-Public Use
  Company Number: US-ROXANE LABORATORIES, INC.-2014-RO-00477RO

PATIENT
  Age: 17 Year
  Sex: Male

DRUGS (3)
  1. PREDNISONE [Suspect]
     Indication: TUBULOINTERSTITIAL NEPHRITIS
     Dosage: 60 MG
     Route: 065
  2. AZATHIOPRINE [Suspect]
     Indication: CROHN^S DISEASE
     Route: 065
  3. METHYLPHENIDATE [Concomitant]
     Indication: ATTENTION DEFICIT/HYPERACTIVITY DISORDER
     Route: 065

REACTIONS (4)
  - Erythema nodosum [Unknown]
  - Mood swings [Unknown]
  - Cushingoid [Unknown]
  - Educational problem [Unknown]
